FAERS Safety Report 23790129 (Version 1)
Quarter: 2024Q2

REPORT INFORMATION
  Report Type: Spontaneous
  Country: GB (occurrence: None)
  Receive Date: 20240426
  Receipt Date: 20240426
  Transmission Date: 20240715
  Serious: Yes (Life-Threatening, Disabling, Other)
  Sender: FDA-Public Use
  Company Number: 2024A096482

PATIENT
  Age: 28285 Day
  Sex: Male
  Weight: 66.2 kg

DRUGS (1)
  1. DAPAGLIFLOZIN [Suspect]
     Active Substance: DAPAGLIFLOZIN
     Indication: Cardiac failure
     Route: 048

REACTIONS (3)
  - Fournier^s gangrene [Recovering/Resolving]
  - Post-traumatic stress disorder [Recovering/Resolving]
  - Genital cyst [Recovering/Resolving]

NARRATIVE: CASE EVENT DATE: 20231212
